FAERS Safety Report 9555284 (Version 2)
Quarter: 2014Q1

REPORT INFORMATION
  Report Type: Spontaneous
  Country: BR (occurrence: BR)
  Receive Date: 20130926
  Receipt Date: 20140113
  Transmission Date: 20141002
  Serious: Yes (Life-Threatening, Hospitalization)
  Sender: FDA-Public Use
  Company Number: BR-ELI_LILLY_AND_COMPANY-BR201309005589

PATIENT
  Sex: Female
  Weight: 43 kg

DRUGS (5)
  1. CYMBALTA [Suspect]
     Indication: DEPRESSION
     Dosage: 60 MG, UNKNOWN
     Route: 048
     Dates: start: 2011
  2. CYMBALTA [Suspect]
     Indication: BACK PAIN
     Dosage: 60 MG, UNKNOWN
     Route: 065
     Dates: start: 201308
  3. CYMBALTA [Suspect]
     Indication: SPINAL DEFORMITY
  4. VALTRIAN [Concomitant]
     Indication: BLOOD PRESSURE
     Dosage: 50 MG, QD
     Route: 065
  5. CARDIZEM                           /00489701/ [Concomitant]
     Indication: CARDIAC DISORDER
     Dosage: 30 MG, QD
     Route: 065

REACTIONS (4)
  - Septic shock [Recovered/Resolved]
  - Lung infection [Recovered/Resolved]
  - Wrong technique in drug usage process [Recovered/Resolved]
  - Feeding disorder [Recovering/Resolving]
